FAERS Safety Report 9196832 (Version 2)
Quarter: 2013Q2

REPORT INFORMATION
  Report Type: Spontaneous
  Country: MX (occurrence: MX)
  Receive Date: 20130328
  Receipt Date: 20130412
  Transmission Date: 20140414
  Serious: Yes (Other)
  Sender: FDA-Public Use
  Company Number: PHHY2013MX028586

PATIENT
  Age: 65 Year
  Sex: Male

DRUGS (5)
  1. GALVUS MET [Suspect]
     Indication: DIABETES MELLITUS
     Dosage: 2 DF, DAILY (METF 1000 MG, VILD 50 MG)
     Route: 048
     Dates: start: 201201
  2. CO-DIOVAN [Suspect]
     Indication: HYPERTENSION
     Dosage: 1 DF (VALS 320 MG, HCTZ 50 MG), UNK
     Route: 048
     Dates: start: 201201
  3. LYRICA [Concomitant]
     Indication: NEUROPATHY PERIPHERAL
     Dosage: 1 DF, DAILY
     Dates: start: 2010
  4. INSULIN DETEMIR [Concomitant]
     Indication: DIABETES MELLITUS
     Dosage: 50 (UNIT UNSPECIFIED)
     Dates: start: 2012
  5. LIPITOR [Concomitant]
     Indication: BLOOD CHOLESTEROL

REACTIONS (5)
  - Thyroid disorder [Not Recovered/Not Resolved]
  - Prostatitis [Not Recovered/Not Resolved]
  - Blood glucose increased [Recovered/Resolved]
  - Pain in extremity [Not Recovered/Not Resolved]
  - Dizziness [Not Recovered/Not Resolved]
